FAERS Safety Report 13912098 (Version 1)
Quarter: 2017Q3

REPORT INFORMATION
  Report Type: Spontaneous
  Country: US (occurrence: US)
  Receive Date: 20170828
  Receipt Date: 20170828
  Transmission Date: 20171127
  Serious: No
  Sender: FDA-Public Use
  Company Number: US-ROCHE-GNE323174

PATIENT
  Age: 13 Year
  Sex: Male
  Weight: 27.24 kg

DRUGS (2)
  1. NUTROPIN AQ [Suspect]
     Active Substance: SOMATROPIN
     Indication: PRODUCT USED FOR UNKNOWN INDICATION
     Dosage: 1.5 MG, 6/WEEK
     Route: 065
     Dates: end: 20110714
  2. NUTROPIN AQ [Suspect]
     Active Substance: SOMATROPIN
     Dosage: 1.7 MG, UNK
     Route: 065
     Dates: start: 20110715

REACTIONS (6)
  - Nausea [None]
  - Vomiting [None]
  - Myalgia [None]
  - Fatigue [None]
  - Dizziness [None]
  - Headache [Unknown]

NARRATIVE: CASE EVENT DATE: 20110817
